FAERS Safety Report 10704080 (Version 1)
Quarter: 2015Q1

REPORT INFORMATION
  Report Type: Spontaneous
  Country: US (occurrence: US)
  Receive Date: 20150112
  Receipt Date: 20150112
  Transmission Date: 20150721
  Serious: No
  Sender: FDA-Public Use
  Company Number: US-PFIZER INC-2015005131

PATIENT
  Age: 55 Year

DRUGS (1)
  1. TORISEL [Suspect]
     Active Substance: TEMSIROLIMUS
     Dosage: UNK

REACTIONS (3)
  - Dyspnoea [Unknown]
  - Drug hypersensitivity [Unknown]
  - Urticaria [Unknown]
